FAERS Safety Report 21648999 (Version 1)
Quarter: 2022Q4

REPORT INFORMATION
  Report Type: Spontaneous
  Country: US (occurrence: None)
  Receive Date: 20221123
  Receipt Date: 20221123
  Transmission Date: 20230113
  Serious: No
  Sender: FDA-Public Use
  Company Number: None

PATIENT
  Age: 58 Year
  Sex: Female

DRUGS (1)
  1. TEMODAR [Suspect]
     Active Substance: TEMOZOLOMIDE
     Dosage: 240MG OTHER  ORAL?
     Route: 048
     Dates: start: 202210

REACTIONS (1)
  - Myelosuppression [None]

NARRATIVE: CASE EVENT DATE: 20221122
